FAERS Safety Report 7197212-3 (Version None)
Quarter: 2010Q4

REPORT INFORMATION
  Report Type: 
  Country: None (occurrence: None)
  Receive Date: 20101224
  Receipt Date: 20101221
  Transmission Date: 20110411
  Serious: Yes (Hospitalization)
  Sender: FDA-Public Use
  Company Number: GB-AMGEN-GBRCT2010010355

PATIENT

DRUGS (10)
  1. PANITUMUMAB [Suspect]
     Indication: OESOPHAGEAL CARCINOMA
     Dosage: UNK
     Dates: start: 20101029
  2. EPIRUBICIN [Suspect]
     Dosage: UNK
     Dates: start: 20101029
  3. OXALIPLATIN [Suspect]
     Dosage: UNK
     Dates: start: 20101029
  4. CAPECITABINE [Suspect]
     Dosage: UNK
     Dates: start: 20101029
  5. CLEXANE [Concomitant]
     Dosage: 135 MG, QD
     Dates: start: 20101015
  6. METFORMIN [Concomitant]
     Dosage: 1 G, QD
     Dates: start: 20040101
  7. PIOGLITAZONE [Concomitant]
     Dosage: 45 MG, QD
  8. LANSOPRAZOLE [Concomitant]
     Dosage: 15 MG, QD
  9. FERROUS SULPHATE                   /00023503/ [Concomitant]
     Dosage: 200 MG, BID
     Dates: start: 20100824
  10. SIMVADOR [Concomitant]
     Dosage: 20 MG, QD

REACTIONS (2)
  - ATRIAL FIBRILLATION [None]
  - VOMITING [None]
